APPROVED DRUG PRODUCT: MINOCYCLINE HYDROCHLORIDE
Active Ingredient: MINOCYCLINE HYDROCHLORIDE
Strength: EQ 100MG BASE
Dosage Form/Route: CAPSULE;ORAL
Application: A090867 | Product #003
Applicant: SUN PHARMACEUTICAL INDUSTRIES INC
Approved: May 13, 2013 | RLD: No | RS: No | Type: DISCN